FAERS Safety Report 4425801-5 (Version None)
Quarter: 2004Q3

REPORT INFORMATION
  Report Type: 
  Country: None (occurrence: None)
  Receive Date: 20040719
  Receipt Date: 20030729
  Transmission Date: 20050211
  Serious: Yes (Other)
  Sender: FDA-Public Use
  Company Number: 176550

PATIENT
  Age: 39 Year
  Sex: Female
  Weight: 99.7913 kg

DRUGS (1)
  1. AVONEX [Suspect]
     Indication: MULTIPLE SCLEROSIS
     Dosage: 30 MCG QW IM
     Route: 030
     Dates: start: 19970101

REACTIONS (5)
  - ABORTION SPONTANEOUS [None]
  - ARTHRALGIA [None]
  - FALL [None]
  - MULTIPLE SCLEROSIS [None]
  - STRESS SYMPTOMS [None]
